FAERS Safety Report 22080745 (Version 3)
Quarter: 2023Q1

REPORT INFORMATION
  Report Type: Spontaneous
  Country: JP (occurrence: JP)
  Receive Date: 20230309
  Receipt Date: 20230321
  Transmission Date: 20230418
  Serious: Yes (Death, Other)
  Sender: FDA-Public Use
  Company Number: JP-MALLINCKRODT-MNK202300203

PATIENT
  Age: 48 Year
  Sex: Male

DRUGS (4)
  1. NITRIC OXIDE [Suspect]
     Active Substance: NITRIC OXIDE
     Indication: Graft versus host disease
     Dosage: UNKNOWN (INDUSTRIAL NO GASES WAS USED FOR A PATIENT)
     Route: 055
  2. NITRIC OXIDE [Suspect]
     Active Substance: NITRIC OXIDE
     Indication: Pulmonary veno-occlusive disease
  3. EPOPROSTENOL [Concomitant]
     Active Substance: EPOPROSTENOL
     Dosage: UNKNOWN
     Route: 042
  4. EPOPROSTENOL [Concomitant]
     Active Substance: EPOPROSTENOL
     Dosage: GRADUALLY INCREASED TO 20 NG/KG/MIN
     Route: 042

REACTIONS (5)
  - Pulmonary veno-occlusive disease [Fatal]
  - Pulmonary oedema [Unknown]
  - Condition aggravated [Unknown]
  - Drug ineffective for unapproved indication [Unknown]
  - Product use issue [Unknown]
